FAERS Safety Report 7561148-6 (Version None)
Quarter: 2011Q2

REPORT INFORMATION
  Report Type: 
  Country: None (occurrence: None)
  Receive Date: 20110620
  Receipt Date: 20110620
  Transmission Date: 20111010
  Serious: Yes (Hospitalization)
  Sender: FDA-Public Use
  Company Number: None

PATIENT
  Sex: Male
  Weight: 41 kg

DRUGS (6)
  1. PREVACID [Concomitant]
  2. CYCLOPHOSPHAMIDE [Suspect]
     Dosage: 1300  MG
  3. THIOGUANINE [Suspect]
     Dosage: 780 MG
  4. XOLAIR [Concomitant]
  5. ZOLOFT [Concomitant]
  6. CYTARABINE [Suspect]
     Dosage: 780 MG

REACTIONS (2)
  - PORTAL HYPERTENSION [None]
  - VENOOCCLUSIVE LIVER DISEASE [None]
